FAERS Safety Report 20854284 (Version 1)
Quarter: 2022Q2

REPORT INFORMATION
  Report Type: Spontaneous
  Country: CN (occurrence: CN)
  Receive Date: 20220520
  Receipt Date: 20220520
  Transmission Date: 20220721
  Serious: Yes (Other)
  Sender: FDA-Public Use
  Company Number: CN-009507513-2205CHN003948

PATIENT
  Sex: Male
  Weight: 62 kg

DRUGS (9)
  1. CILASTATIN SODIUM\IMIPENEM [Suspect]
     Active Substance: CILASTATIN SODIUM\IMIPENEM
     Indication: Pneumonia
     Dosage: 1 G EVERY 12 HOURS, IVGTT
     Route: 041
     Dates: start: 20220331, end: 20220419
  2. CEFOPERAZONE SODIUM\SULBACTAM SODIUM [Suspect]
     Active Substance: CEFOPERAZONE SODIUM\SULBACTAM SODIUM
     Indication: Pneumonia
     Dosage: 2 G EVERY 8 HOURS, IVGTT; INFUSION ONCE
     Route: 041
     Dates: start: 20220327, end: 20220330
  3. HERBALS [Suspect]
     Active Substance: HERBALS
     Indication: Pyrexia
     Dosage: 5 G THREE TIMES A DAY (TID), PO
     Route: 048
     Dates: start: 20220328, end: 20220331
  4. PRAMIPEXOLE DIHYDROCHLORIDE [Concomitant]
     Active Substance: PRAMIPEXOLE DIHYDROCHLORIDE
     Indication: Parkinson^s disease
     Dosage: 0.125 MG THREE TIMES A DAY (TID), PO
     Route: 048
     Dates: start: 20220224, end: 20220330
  5. PRAMIPEXOLE DIHYDROCHLORIDE [Concomitant]
     Active Substance: PRAMIPEXOLE DIHYDROCHLORIDE
     Dosage: 0.125 MG THREE TIMES A DAY (TID), NASAL FEEDING
     Dates: start: 20220331, end: 20220430
  6. BENSERAZIDE\LEVODOPA [Concomitant]
     Active Substance: BENSERAZIDE\LEVODOPA
     Indication: Parkinson^s disease
     Dosage: 0.25 TABLET THREE TIMES A DAY (TID), PO
     Route: 048
     Dates: start: 20220224, end: 20220330
  7. BENSERAZIDE\LEVODOPA [Concomitant]
     Active Substance: BENSERAZIDE\LEVODOPA
     Dosage: 0.25 DOSAGE FORM, THREE TIMES A DAY (TID), NASAL FEEDING
     Dates: start: 20220331, end: 20220430
  8. SODIUM CHLORIDE [Concomitant]
     Active Substance: SODIUM CHLORIDE
     Indication: Pneumonia
     Dosage: 100 ML, EVERY 8 HOURS (Q8H), IVGTT
     Route: 041
     Dates: start: 20220327, end: 20220330
  9. SODIUM CHLORIDE [Concomitant]
     Active Substance: SODIUM CHLORIDE
     Dosage: 100 ML, EVERY 12 HOURS (Q12H), IVGTT
     Route: 041
     Dates: start: 20220331, end: 20220419

REACTIONS (2)
  - Gastrointestinal tube insertion [Unknown]
  - Hepatic enzyme increased [Recovered/Resolved]

NARRATIVE: CASE EVENT DATE: 20220331
